FAERS Safety Report 5265748-8 (Version None)
Quarter: 2007Q1

REPORT INFORMATION
  Report Type: 
  Country: None (occurrence: None)
  Receive Date: 20061213
  Receipt Date: 20040123
  Transmission Date: 20070707
  Serious: Yes (Other)
  Sender: FDA-Public Use
  Company Number: 2004UW01288

PATIENT
  Age: 61 Year
  Weight: 86.1834 kg

DRUGS (9)
  1. IRESSA [Suspect]
     Indication: NON-SMALL CELL LUNG CANCER
     Dosage: 250 MG PO
     Route: 048
     Dates: start: 20030901
  2. ZOCOR [Concomitant]
  3. SINGULAIR ^MERCK FROSST^ [Concomitant]
  4. ADVAIR DISKUS 100/50 [Concomitant]
  5. ALBUTEROL [Concomitant]
  6. AMILORIDE HCL AND HYDROCHLOROTHIAZIDE [Concomitant]
  7. CALCITONIN-SALMON [Concomitant]
  8. WELLBUTRIN [Concomitant]
  9. SONORAN [Concomitant]

REACTIONS (4)
  - DIARRHOEA [None]
  - EYE PRURITUS [None]
  - OPTIC NERVE DISORDER [None]
  - RASH [None]
